FAERS Safety Report 6551880-5 (Version None)
Quarter: 2010Q1

REPORT INFORMATION
  Report Type: 
  Country: None (occurrence: None)
  Receive Date: 20100126
  Receipt Date: 20100115
  Transmission Date: 20100710
  Serious: Yes (Death)
  Sender: FDA-Public Use
  Company Number: US-JNJFOC-20100106969

PATIENT
  Age: 54 Year
  Sex: Female

DRUGS (6)
  1. ACETAMINOPHEN [Suspect]
     Route: 048
  2. ACETAMINOPHEN [Suspect]
     Indication: SUICIDE ATTEMPT
     Route: 048
  3. AMLODIPINE [Suspect]
     Indication: SUICIDE ATTEMPT
     Route: 048
  4. ETHANOL [Suspect]
     Indication: SUICIDE ATTEMPT
     Route: 048
  5. OXYCODONE [Suspect]
     Indication: SUICIDE ATTEMPT
     Route: 048
  6. CITALOPRAM [Suspect]
     Indication: SUICIDE ATTEMPT
     Route: 048

REACTIONS (6)
  - ALCOHOL USE [None]
  - CARDIAC ARREST [None]
  - DRUG TOXICITY [None]
  - RESPIRATORY ARREST [None]
  - SUICIDE ATTEMPT [None]
  - THERAPEUTIC AGENT TOXICITY [None]
